FAERS Safety Report 22067014 (Version 1)
Quarter: 2023Q1

REPORT INFORMATION
  Report Type: Spontaneous
  Country: US (occurrence: US)
  Receive Date: 20230306
  Receipt Date: 20230306
  Transmission Date: 20230417
  Serious: No
  Sender: FDA-Public Use
  Company Number: US-PLXPHARMA-2022-PLX-00053

PATIENT

DRUGS (1)
  1. VAZALORE [Suspect]
     Active Substance: ASPIRIN
     Indication: Product used for unknown indication
     Dosage: QD
     Route: 048
     Dates: start: 20220608, end: 20220608

REACTIONS (2)
  - Lip swelling [None]
  - Hypersensitivity [None]
